FAERS Safety Report 7612359-2 (Version None)
Quarter: 2011Q3

REPORT INFORMATION
  Report Type: 
  Country: None (occurrence: None)
  Receive Date: 20110716
  Receipt Date: 20110706
  Transmission Date: 20111222
  Serious: Yes (Hospitalization, Other)
  Sender: FDA-Public Use
  Company Number: US-ASTRAZENECA-2011SE12160

PATIENT
  Age: 69 Year
  Sex: Female
  Weight: 83 kg

DRUGS (25)
  1. LUTEIN VISION [Concomitant]
  2. NORCO [Concomitant]
  3. SOMA [Concomitant]
  4. SEROQUEL [Suspect]
     Indication: BIPOLAR DISORDER
     Route: 048
     Dates: start: 20010101
  5. SEROQUEL [Suspect]
     Indication: PANIC ATTACK
     Route: 048
     Dates: start: 20010101
  6. VENTOLIN HFA [Concomitant]
     Dosage: PRN
  7. SECTRAL [Concomitant]
  8. SYMBICORT [Suspect]
     Indication: ASTHMA
     Route: 055
  9. RHINOCORT [Concomitant]
  10. C-1000 PLUS BIOFLAVONOIDS [Concomitant]
  11. REMERON GENERIC [Concomitant]
  12. TEKTURNA [Concomitant]
  13. VITAMIN E [Concomitant]
  14. BETACAROTENE [Concomitant]
  15. AMITRIPTYLINE HCL [Concomitant]
  16. QUINAPRIL HCL [Concomitant]
  17. ENABLEX [Concomitant]
  18. SINGULAIR [Concomitant]
     Dosage: DAILY
  19. BROMPHENIRAMINE MALEATE + PSEUDOEPHEDRINE HCL [Concomitant]
     Dosage: DAILY
  20. DILTIAZEM [Concomitant]
  21. NEXIUM [Suspect]
     Indication: GASTRIC DISORDER
     Route: 048
  22. CLONIDINE [Concomitant]
  23. LYRICA [Concomitant]
  24. CLONAZEPAM [Concomitant]
  25. CYMBALTA [Concomitant]

REACTIONS (4)
  - PNEUMONIA [None]
  - FOOT FRACTURE [None]
  - TOE OPERATION [None]
  - WEIGHT DECREASED [None]
